FAERS Safety Report 5093390-0 (Version None)
Quarter: 2006Q3

REPORT INFORMATION
  Report Type: 
  Country: None (occurrence: None)
  Receive Date: 20060823
  Receipt Date: 20060407
  Transmission Date: 20061208
  Serious: Yes (Hospitalization, Other)
  Sender: FDA-Public Use
  Company Number: 2006BH007776

PATIENT
  Age: 28 Year
  Sex: Male
  Weight: 74.8 kg

DRUGS (2)
  1. ADVATE [Suspect]
     Indication: HAEMORRHAGE
     Dosage: AS NEEDED
     Dates: start: 20050815, end: 20060224
  2. ADVATE [Suspect]

REACTIONS (2)
  - FACTOR XIII INHIBITION [None]
  - HAEMORRHAGE [None]
